FAERS Safety Report 15988259 (Version 2)
Quarter: 2019Q1

REPORT INFORMATION
  Report Type: Spontaneous
  Country: US (occurrence: US)
  Receive Date: 20190221
  Receipt Date: 20190316
  Transmission Date: 20190418
  Serious: No
  Sender: FDA-Public Use
  Company Number: US-UNITED THERAPEUTICS-UNT-2019-001229

PATIENT
  Age: 57 Year
  Sex: Male
  Weight: 86.17 kg

DRUGS (1)
  1. ORENITRAM [Suspect]
     Active Substance: TREPROSTINIL
     Indication: PULMONARY ARTERIAL HYPERTENSION
     Dosage: 15 MG, TID
     Route: 048
     Dates: start: 20180601

REACTIONS (6)
  - Dyspepsia [Recovered/Resolved]
  - Dyspnoea exertional [Unknown]
  - Fatigue [Unknown]
  - Headache [Not Recovered/Not Resolved]
  - Malaise [Unknown]
  - Flushing [Unknown]

NARRATIVE: CASE EVENT DATE: 201901
